FAERS Safety Report 21774689 (Version 1)
Quarter: 2022Q4

REPORT INFORMATION
  Report Type: Spontaneous
  Country: US (occurrence: US)
  Receive Date: 20221224
  Receipt Date: 20221224
  Transmission Date: 20230113
  Serious: Yes (Hospitalization, Other)
  Sender: FDA-Public Use
  Company Number: US-TEVA-2022-US-2838667

PATIENT
  Sex: Male

DRUGS (5)
  1. TORSEMIDE [Suspect]
     Active Substance: TORSEMIDE
     Indication: Product used for unknown indication
     Route: 065
  2. LOSARTAN [Suspect]
     Active Substance: LOSARTAN
     Indication: Product used for unknown indication
     Route: 065
  3. CYCLOSPORINE [Suspect]
     Active Substance: CYCLOSPORINE
     Indication: Product used for unknown indication
     Route: 065
  4. CYCLOSPORINE [Suspect]
     Active Substance: CYCLOSPORINE
     Dosage: EVENING
     Route: 065
  5. JAKAFI [Suspect]
     Active Substance: RUXOLITINIB
     Indication: Product used for unknown indication
     Dosage: 10 MILLIGRAM DAILY;
     Route: 048
     Dates: start: 201710

REACTIONS (5)
  - Renal failure [Unknown]
  - Urinary retention [Unknown]
  - Sepsis [Unknown]
  - Pneumonia [Unknown]
  - Cystitis [Unknown]
